FAERS Safety Report 17472038 (Version 3)
Quarter: 2020Q2

REPORT INFORMATION
  Report Type: Report from Study
  Country: US (occurrence: US)
  Receive Date: 20200228
  Receipt Date: 20200417
  Transmission Date: 20200713
  Serious: Yes (Other)
  Sender: FDA-Public Use
  Company Number: US-GILEAD-2020-0448368

PATIENT
  Age: 83 Year
  Sex: Male

DRUGS (23)
  1. MAGNESIUM [Concomitant]
     Active Substance: MAGNESIUM
  2. VOLTAREN ACTI [Concomitant]
     Active Substance: DICLOFENAC POTASSIUM
  3. HYDRALAZINE [Concomitant]
     Active Substance: HYDRALAZINE HYDROCHLORIDE
  4. MONTELUKAST [Concomitant]
     Active Substance: MONTELUKAST SODIUM
  5. LUTEIN + [Concomitant]
  6. AMOXICILLIN. [Concomitant]
     Active Substance: AMOXICILLIN
  7. CLONAZEPAM. [Concomitant]
     Active Substance: CLONAZEPAM
  8. ELIQUIS [Concomitant]
     Active Substance: APIXABAN
  9. HYDROXYZINE HCL [Concomitant]
     Active Substance: HYDROXYZINE HYDROCHLORIDE
  10. AMBRISENTAN [Suspect]
     Active Substance: AMBRISENTAN
     Indication: PULMONARY HYPERTENSION
     Dosage: 5 MG, QD
     Route: 065
  11. FUROSEMIDE. [Concomitant]
     Active Substance: FUROSEMIDE
  12. OMEGA 3 + 6 [Concomitant]
     Active Substance: .ALPHA.-TOCOPHEROL ACETATE, D-\EVENING PRIMROSE OIL\FISH OIL
  13. POTASSIUM [Concomitant]
     Active Substance: POTASSIUM
  14. ZINC. [Concomitant]
     Active Substance: ZINC
  15. ATENOLOL. [Concomitant]
     Active Substance: ATENOLOL
  16. HYDROCODONE BITARTRATE AND ACETAMINOPHEN [Concomitant]
     Active Substance: ACETAMINOPHEN\HYDROCODONE BITARTRATE
  17. ISOSORBIDE DINITRATE. [Concomitant]
     Active Substance: ISOSORBIDE DINITRATE
  18. XARELTO [Concomitant]
     Active Substance: RIVAROXABAN
  19. VALACYCLOVIR [Suspect]
     Active Substance: VALACYCLOVIR HYDROCHLORIDE
     Indication: PRODUCT USED FOR UNKNOWN INDICATION
     Route: 065
  20. BELSOMRA [Concomitant]
     Active Substance: SUVOREXANT
  21. CORTIZONE-10 [HYDROCORTISONE] [Concomitant]
  22. FISH OIL [Concomitant]
     Active Substance: FISH OIL
  23. OMEPRAZOLE. [Concomitant]
     Active Substance: OMEPRAZOLE

REACTIONS (10)
  - Dizziness [Not Recovered/Not Resolved]
  - Renal pain [Not Recovered/Not Resolved]
  - Dyspnoea [Not Recovered/Not Resolved]
  - Hallucination [Not Recovered/Not Resolved]
  - Headache [Not Recovered/Not Resolved]
  - Back pain [Not Recovered/Not Resolved]
  - Herpes zoster [Not Recovered/Not Resolved]
  - Prostatic disorder [Not Recovered/Not Resolved]
  - Nephropathy [Not Recovered/Not Resolved]
  - Pruritus [Not Recovered/Not Resolved]
